FAERS Safety Report 6147227-9 (Version None)
Quarter: 2009Q2

REPORT INFORMATION
  Report Type: 
  Country: None (occurrence: None)
  Receive Date: 20090408
  Receipt Date: 20070314
  Transmission Date: 20091009
  Serious: Yes (Hospitalization, Other)
  Sender: FDA-Public Use
  Company Number: US-ASTRAZENECA-2007UW02052

PATIENT
  Age: 17289 Day
  Sex: Female
  Weight: 66.6 kg

DRUGS (35)
  1. SEROQUEL [Suspect]
     Indication: PSYCHOTIC DISORDER
     Route: 048
     Dates: start: 20040701
  2. SEROQUEL [Suspect]
     Indication: ANXIETY
     Route: 048
     Dates: start: 20040701
  3. SEROQUEL [Suspect]
     Indication: SCHIZOPHRENIA, PARANOID TYPE
     Route: 048
     Dates: start: 20040701
  4. SEROQUEL [Suspect]
     Dosage: 25MG-600MG
     Route: 048
     Dates: start: 20041207
  5. SEROQUEL [Suspect]
     Dosage: 25MG-600MG
     Route: 048
     Dates: start: 20041207
  6. SEROQUEL [Suspect]
     Dosage: 25MG-600MG
     Route: 048
     Dates: start: 20041207
  7. SERTRALINE HCL [Concomitant]
  8. BUSPAR [Concomitant]
  9. XANAX [Concomitant]
  10. ZOLOFT [Concomitant]
  11. METFORMIN HCL [Concomitant]
  12. VYTORIN [Concomitant]
  13. GLIPIZIDE [Concomitant]
  14. ZIPRASIDONE HCL [Concomitant]
  15. TRAZODONE HCL [Concomitant]
  16. RISPERDAL [Concomitant]
  17. ZYPREXA [Concomitant]
  18. SERZONE [Concomitant]
  19. ACETAMINOPHEN [Concomitant]
  20. BISMUTH SUBSALICYLATE IN OIL INJ [Concomitant]
  21. DIAZEPAM [Concomitant]
  22. DICYCLOMINE [Concomitant]
  23. COMPAZINE [Concomitant]
  24. LOPERAMIDE HCL [Concomitant]
  25. NICOTINE POLACRILEX [Concomitant]
  26. TRICOR [Concomitant]
  27. OXYMETAZOLINE HCL [Concomitant]
  28. SIMETHICONE [Concomitant]
  29. THIAMINE HCL [Concomitant]
  30. TRIAMINIC [Concomitant]
  31. ALBUTEROL [Concomitant]
  32. CIPROFLOXACIN [Concomitant]
  33. GLIMEPIRIDE [Concomitant]
  34. IBUPROFEN [Concomitant]
  35. MILK OF MAGNESIA [Concomitant]

REACTIONS (14)
  - ALCOHOLISM [None]
  - ANXIETY [None]
  - BACK PAIN [None]
  - CORONARY ARTERY DISEASE [None]
  - DRUG ABUSE [None]
  - DYSTHYMIC DISORDER [None]
  - GALACTORRHOEA [None]
  - INTERVERTEBRAL DISC DEGENERATION [None]
  - INTERVERTEBRAL DISC PROTRUSION [None]
  - SCHIZOAFFECTIVE DISORDER [None]
  - SCHIZOPHRENIA, UNDIFFERENTIATED TYPE [None]
  - SPINAL OSTEOARTHRITIS [None]
  - SUBSTANCE ABUSE [None]
  - TYPE 2 DIABETES MELLITUS [None]
